FAERS Safety Report 15159348 (Version 1)
Quarter: 2018Q3

REPORT INFORMATION
  Report Type: Spontaneous
  Country: US (occurrence: US)
  Receive Date: 20180718
  Receipt Date: 20180718
  Transmission Date: 20181010
  Serious: Yes (Other)
  Sender: FDA-Public Use
  Company Number: US-SAOL THERAPEUTICS-2018SAO00890

PATIENT
  Age: 19 Year
  Sex: Female

DRUGS (4)
  1. BACLOFEN. [Suspect]
     Active Substance: BACLOFEN
     Dosage: UNK
     Route: 037
     Dates: start: 201609
  2. BACLOFEN. [Suspect]
     Active Substance: BACLOFEN
     Route: 037
  3. LIORESAL [Suspect]
     Active Substance: BACLOFEN
     Indication: CEREBRAL PALSY
  4. LIORESAL [Suspect]
     Active Substance: BACLOFEN
     Indication: MUSCLE SPASTICITY
     Dosage: UNK
     Route: 037

REACTIONS (8)
  - Hallucination [Unknown]
  - Hypersensitivity [Unknown]
  - Muscle spasms [Unknown]
  - Urticaria [Unknown]
  - Pain [Unknown]
  - Drug dispensing error [Unknown]
  - Throat irritation [Unknown]
  - Delirium [Unknown]

NARRATIVE: CASE EVENT DATE: 201609
